FAERS Safety Report 25149080 (Version 1)
Quarter: 2025Q2

REPORT INFORMATION
  Report Type: Spontaneous
  Country: GB (occurrence: GB)
  Receive Date: 20250402
  Receipt Date: 20250402
  Transmission Date: 20250716
  Serious: Yes (Other)
  Sender: RANBAXY
  Company Number: GB-SUN PHARMACEUTICAL INDUSTRIES LTD-2025R1-501349

PATIENT
  Sex: Female

DRUGS (1)
  1. METHOTREXATE [Suspect]
     Active Substance: METHOTREXATE
     Indication: Takayasu^s arteritis
     Route: 065

REACTIONS (1)
  - Myocarditis [Unknown]
